FAERS Safety Report 13795634 (Version 1)
Quarter: 2017Q3

REPORT INFORMATION
  Report Type: Not Available
  Country: US (occurrence: US)
  Receive Date: 20170726
  Receipt Date: 20170726
  Transmission Date: 20171127
  Serious: No
  Sender: FDA-Public Use
  Company Number: US-NEUROCRINE BIOSCIENCES INC.-2017NBI00320

PATIENT
  Age: 38 Year
  Sex: Female

DRUGS (10)
  1. INGREZZA [Suspect]
     Active Substance: VALBENAZINE
     Route: 048
     Dates: start: 201705
  2. INGREZZA [Suspect]
     Active Substance: VALBENAZINE
     Indication: TARDIVE DYSKINESIA
     Route: 048
     Dates: start: 20170509, end: 201705
  3. BENADRYL [Suspect]
     Active Substance: DIPHENHYDRAMINE HYDROCHLORIDE
     Indication: PRODUCT USED FOR UNKNOWN INDICATION
  4. ATIVAN [Concomitant]
     Active Substance: LORAZEPAM
     Dosage: AT 9 AM, NOON, 6 PM.
  5. MIRTAZAPINE. [Concomitant]
     Active Substance: MIRTAZAPINE
     Dosage: AT BEDTIME
  6. LITHIUM. [Concomitant]
     Active Substance: LITHIUM
     Dosage: AT 9 AM AND 6 PM
  7. HYDROCODONE/ACETAMINOPHEN [Concomitant]
     Active Substance: ACETAMINOPHEN\HYDROCODONE
  8. VALIUM [Concomitant]
     Active Substance: DIAZEPAM
  9. TIZANIDINE. [Concomitant]
     Active Substance: TIZANIDINE
     Dosage: AT 7 AM AND NOON
  10. EXTAMPZA [Concomitant]
     Dosage: AT 7 AM AND 6 PM

REACTIONS (2)
  - Muscle spasms [Unknown]
  - Restlessness [Unknown]

NARRATIVE: CASE EVENT DATE: 201706
